FAERS Safety Report 12803551 (Version 1)
Quarter: 2016Q4

REPORT INFORMATION
  Report Type: Spontaneous
  Country: US (occurrence: US)
  Receive Date: 20161003
  Receipt Date: 20161003
  Transmission Date: 20170207
  Serious: No
  Sender: FDA-Public Use
  Company Number: US-TEVA-698043USA

PATIENT
  Age: 67 Year
  Sex: Female

DRUGS (12)
  1. BUDESONIDE. [Concomitant]
     Active Substance: BUDESONIDE
  2. TRAMADOL. [Concomitant]
     Active Substance: TRAMADOL
  3. ALPRAZOLAM. [Concomitant]
     Active Substance: ALPRAZOLAM
  4. BACLOFEN. [Concomitant]
     Active Substance: BACLOFEN
  5. APAP [Concomitant]
     Active Substance: ACETAMINOPHEN
  6. COPAXONE [Suspect]
     Active Substance: GLATIRAMER ACETATE
     Indication: MULTIPLE SCLEROSIS
     Route: 058
     Dates: start: 20160721
  7. LANSOPRAZOLE. [Concomitant]
     Active Substance: LANSOPRAZOLE
  8. VICODIN [Concomitant]
     Active Substance: ACETAMINOPHEN\HYDROCODONE BITARTRATE
  9. PROBIOTIC [Concomitant]
     Active Substance: PROBIOTICS NOS
  10. FAMOTIDINE. [Concomitant]
     Active Substance: FAMOTIDINE
  11. LYRICA [Concomitant]
     Active Substance: PREGABALIN
  12. DULOXETINE. [Concomitant]
     Active Substance: DULOXETINE

REACTIONS (1)
  - Malaise [Unknown]

NARRATIVE: CASE EVENT DATE: 201608
